FAERS Safety Report 9280745 (Version 1)
Quarter: 2013Q2

REPORT INFORMATION
  Report Type: Spontaneous
  Country: US (occurrence: None)
  Receive Date: 20130502
  Receipt Date: 20130502
  Transmission Date: 20140414
  Serious: Yes (Other)
  Sender: FDA-Public Use
  Company Number: 001519273A

PATIENT
  Age: 55 Year
  Sex: Male

DRUGS (2)
  1. MEANINGFUL BEAUTY ANTIOXIDANT DAY CREME SPF 20 [Suspect]
     Dosage: ONCE DAILY DERMAL?
     Dates: start: 20130320, end: 20130322
  2. MEANINGFUL BEAUTY SKIN BRIGHTENING DECOLLETE NECK TREATMENT SPF.15 [Suspect]
     Dosage: ONCE DAILY DERMAL?
     Dates: start: 20130320, end: 20130322

REACTIONS (5)
  - Rash [None]
  - Eye swelling [None]
  - Swelling face [None]
  - Pruritus [None]
  - Burning sensation [None]
